FAERS Safety Report 10793988 (Version 1)
Quarter: 2015Q1

REPORT INFORMATION
  Report Type: Spontaneous
  Country: PT (occurrence: PT)
  Receive Date: 20150213
  Receipt Date: 20150213
  Transmission Date: 20150721
  Serious: Yes (Hospitalization)
  Sender: FDA-Public Use
  Company Number: PHHY2015PT014001

PATIENT
  Age: 35 Year
  Sex: Female

DRUGS (3)
  1. FUCUS VESICULOSUS [Interacting]
     Active Substance: FUCUS VESICULOSUS
     Indication: WEIGHT DECREASED
     Route: 065
  2. VENLAFAXINE [Suspect]
     Active Substance: VENLAFAXINE HYDROCHLORIDE
     Indication: DEPRESSION
     Route: 065
  3. CENTELLA ASIATICA [Interacting]
     Active Substance: CENTELLA ASIATICA
     Indication: WEIGHT DECREASED
     Route: 065

REACTIONS (16)
  - Dilatation ventricular [Recovering/Resolving]
  - Systolic dysfunction [Recovering/Resolving]
  - Dyspnoea [Recovering/Resolving]
  - Myalgia [Recovering/Resolving]
  - Cardiac murmur [Recovering/Resolving]
  - Tricuspid valve incompetence [Recovering/Resolving]
  - Congestive cardiomyopathy [Recovering/Resolving]
  - Cardiotoxicity [Recovering/Resolving]
  - Rales [Recovering/Resolving]
  - Cardiac failure [Recovering/Resolving]
  - Mitral valve incompetence [Recovering/Resolving]
  - Ventricular tachycardia [Recovering/Resolving]
  - Hypotension [Recovering/Resolving]
  - Interstitial lung disease [Recovering/Resolving]
  - Cough [Recovering/Resolving]
  - Dilatation atrial [Recovering/Resolving]
